FAERS Safety Report 19064780 (Version 2)
Quarter: 2021Q2

REPORT INFORMATION
  Report Type: Spontaneous
  Country: JP (occurrence: JP)
  Receive Date: 20210327
  Receipt Date: 20210401
  Transmission Date: 20210717
  Serious: Yes (Death, Hospitalization, Other)
  Sender: FDA-Public Use
  Company Number: JP-ROCHE-2797435

PATIENT
  Sex: Male

DRUGS (7)
  1. ACTEMRA [Suspect]
     Active Substance: TOCILIZUMAB
     Indication: CASTLEMAN^S DISEASE
     Dosage: DOSAGE IS UNCERTAIN.
     Route: 041
  2. CICLOSPORIN [Concomitant]
     Active Substance: CYCLOSPORINE
     Dosage: DOSAGE IS UNCERTAIN.
     Route: 065
     Dates: start: 202007
  3. PREDONINE [Concomitant]
     Active Substance: PREDNISOLONE
     Dosage: DOSAGE IS UNCERTAIN.
     Route: 065
     Dates: start: 202007
  4. GLOBULIN [Concomitant]
     Dosage: DOSAGE IS UNCERTAIN.
     Route: 065
     Dates: start: 202007
  5. DEXAMETHASONE. [Concomitant]
     Active Substance: DEXAMETHASONE
     Dosage: DOSAGE IS UNCERTAIN.
     Route: 065
     Dates: start: 2020
  6. REVOLADE [Concomitant]
     Active Substance: ELTROMBOPAG OLAMINE
     Dosage: DOSAGE IS UNCERTAIN.
     Route: 065
     Dates: start: 202007
  7. RITUXAN [Concomitant]
     Active Substance: RITUXIMAB
     Dosage: DOSAGE IS UNCERTAIN.
     Route: 041

REACTIONS (9)
  - Aplastic anaemia [Unknown]
  - End stage renal disease [Fatal]
  - Haemophagocytic lymphohistiocytosis [Unknown]
  - Compression fracture [Unknown]
  - Arrhythmia [Unknown]
  - Myelodysplastic syndrome [Unknown]
  - Abdominal pain [Unknown]
  - Acute kidney injury [Recovering/Resolving]
  - Sepsis [Unknown]

NARRATIVE: CASE EVENT DATE: 2020
